FAERS Safety Report 18446648 (Version 1)
Quarter: 2020Q4

REPORT INFORMATION
  Report Type: Spontaneous
  Country: US (occurrence: US)
  Receive Date: 20201030
  Receipt Date: 20201030
  Transmission Date: 20210114
  Serious: Yes (Hospitalization)
  Sender: FDA-Public Use
  Company Number: US-AMNEAL PHARMACEUTICALS-2020-AMRX-03389

PATIENT
  Age: 64 Year
  Sex: Male

DRUGS (1)
  1. PROPRANOLOL HYDROCHLORIDE IR [Suspect]
     Active Substance: PROPRANOLOL HYDROCHLORIDE
     Indication: HYPERTENSION
     Dosage: UNK
     Route: 065

REACTIONS (8)
  - Toxicity to various agents [Unknown]
  - Syncope [Unknown]
  - Cardiac arrest [Recovering/Resolving]
  - Hyperkalaemia [Unknown]
  - Hypotension [Recovering/Resolving]
  - Hyperglycaemia [Unknown]
  - Bradycardia [Recovering/Resolving]
  - Encephalopathy [Unknown]
